FAERS Safety Report 8743803 (Version 2)
Quarter: 2015Q2

REPORT INFORMATION
  Report Type: Report from Study
  Country: US (occurrence: US)
  Receive Date: 20120824
  Receipt Date: 20150626
  Transmission Date: 20150821
  Serious: Yes (Other)
  Sender: FDA-Public Use
  Company Number: US-ROCHE-1107404

PATIENT
  Sex: Female

DRUGS (5)
  1. TYLENOL #3 (UNITED STATES) [Concomitant]
  2. TAGAMET [Concomitant]
     Active Substance: CIMETIDINE
     Route: 048
  3. COLACE [Concomitant]
     Active Substance: DOCUSATE SODIUM
     Route: 065
  4. VALIUM [Concomitant]
     Active Substance: DIAZEPAM
     Route: 065
  5. ACTIVASE [Suspect]
     Active Substance: ALTEPLASE
     Indication: ACUTE MYOCARDIAL INFARCTION
     Route: 065

REACTIONS (5)
  - Blood pressure decreased [Unknown]
  - Infarction [Unknown]
  - Chest pain [Unknown]
  - Cardiogenic shock [Unknown]
  - Supraventricular extrasystoles [Unknown]
